FAERS Safety Report 8416439-3 (Version None)
Quarter: 2012Q2

REPORT INFORMATION
  Report Type: 
  Country: None (occurrence: None)
  Receive Date: 20120606
  Receipt Date: 20120531
  Transmission Date: 20120825
  Serious: Yes (Hospitalization)
  Sender: FDA-Public Use
  Company Number: US-ROCHE-1074368

PATIENT
  Age: 62 Year
  Sex: Female
  Weight: 72 kg

DRUGS (3)
  1. PACLITAXEL [Suspect]
     Indication: OVARIAN EPITHELIAL CANCER
     Dosage: OVER 3 HRS ON DAY 1 (CYCLES 1-6).
     Route: 042
     Dates: start: 20110614
  2. AVASTIN [Suspect]
     Indication: OVARIAN EPITHELIAL CANCER
     Dosage: 30-90 MINUTES ON DAY 1 OF CYCLES 2+
     Route: 042
  3. CARBOPLATIN [Suspect]
     Indication: OVARIAN EPITHELIAL CANCER
     Dosage: 6 AUC ON DAY 1 (CYCLES 1-6).
     Route: 042
     Dates: start: 20110614

REACTIONS (7)
  - NAUSEA [None]
  - ABDOMINAL DISTENSION [None]
  - BLOOD UREA INCREASED [None]
  - ABDOMINAL PAIN [None]
  - OBSTRUCTION GASTRIC [None]
  - CREATININE RENAL CLEARANCE DECREASED [None]
  - ASTHENIA [None]
